FAERS Safety Report 10971577 (Version 6)
Quarter: 2016Q3

REPORT INFORMATION
  Report Type: Spontaneous
  Country: US (occurrence: US)
  Receive Date: 20150331
  Receipt Date: 20160824
  Transmission Date: 20161109
  Serious: Yes (Hospitalization, Other)
  Sender: FDA-Public Use
  Company Number: US-009507513-1202USA00055

PATIENT
  Sex: Female
  Weight: 63.49 kg

DRUGS (4)
  1. ALENDRONATE SODIUM. [Suspect]
     Active Substance: ALENDRONATE SODIUM
     Dosage: 70 MG, UNK
     Route: 048
     Dates: start: 20080225, end: 20080511
  2. ALENDRONATE SODIUM. [Suspect]
     Active Substance: ALENDRONATE SODIUM
     Dosage: 70 MG, UNK
     Route: 048
     Dates: start: 20080602, end: 20100212
  3. FOSAMAX [Suspect]
     Active Substance: ALENDRONATE SODIUM
     Indication: OSTEOPENIA
  4. FOSAMAX [Suspect]
     Active Substance: ALENDRONATE SODIUM
     Indication: OSTEOPENIA
     Dosage: 70 MG, UNK
     Route: 048
     Dates: start: 1998, end: 200802

REACTIONS (37)
  - Femur fracture [Recovered/Resolved]
  - Sleep disorder [Unknown]
  - Polyuria [Unknown]
  - Arthralgia [Recovering/Resolving]
  - Ankle operation [Unknown]
  - Depression [Unknown]
  - Medical device pain [Unknown]
  - Back pain [Unknown]
  - Pain in extremity [Recovering/Resolving]
  - Tenolysis [Unknown]
  - Bursa removal [Unknown]
  - Cataract operation [Unknown]
  - Spondylolysis [Unknown]
  - Bacterial disease carrier [Unknown]
  - Visual acuity reduced [Unknown]
  - Micturition urgency [Unknown]
  - Myofascial pain syndrome [Unknown]
  - Presyncope [Unknown]
  - Anxiety disorder [Unknown]
  - Foot deformity [Unknown]
  - Type 2 diabetes mellitus [Unknown]
  - Neuropathy peripheral [Unknown]
  - Muscle spasms [Unknown]
  - Ankle fracture [Unknown]
  - Hypertension [Unknown]
  - Neck pain [Unknown]
  - Myositis [Unknown]
  - Vision blurred [Unknown]
  - Fibromyalgia [Unknown]
  - Intramedullary rod insertion [Unknown]
  - Osteoarthritis [Unknown]
  - Anaemia postoperative [Unknown]
  - Photophobia [Unknown]
  - Varicose vein [Unknown]
  - Cyst [Unknown]
  - Type 1 diabetes mellitus [Unknown]
  - Pain [Not Recovered/Not Resolved]

NARRATIVE: CASE EVENT DATE: 1998
